FAERS Safety Report 22657379 (Version 1)
Quarter: 2023Q2

REPORT INFORMATION
  Report Type: Report from Study
  Country: AU (occurrence: AU)
  Receive Date: 20230630
  Receipt Date: 20230630
  Transmission Date: 20230722
  Serious: Yes (Other)
  Sender: FDA-Public Use
  Company Number: AU-GILEAD-2023-0634267

PATIENT
  Sex: Male

DRUGS (1)
  1. BICTEGRAVIR\EMTRICITABINE\TENOFOVIR ALAFENAMIDE [Interacting]
     Active Substance: BICTEGRAVIR\EMTRICITABINE\TENOFOVIR ALAFENAMIDE
     Indication: HIV infection
     Route: 065

REACTIONS (7)
  - Lipodystrophy acquired [Unknown]
  - Fatigue [Unknown]
  - Mood altered [Unknown]
  - Blood cholesterol increased [Unknown]
  - Drug interaction [Unknown]
  - Genotype drug resistance test positive [Unknown]
  - Product use issue [Recovered/Resolved]
